FAERS Safety Report 5830504-6 (Version None)
Quarter: 2008Q3

REPORT INFORMATION
  Report Type: 
  Country: None (occurrence: None)
  Receive Date: 20080801
  Receipt Date: 20070710
  Transmission Date: 20090109
  Serious: Yes (Other)
  Sender: FDA-Public Use
  Company Number: US-BRISTOL-MYERS SQUIBB COMPANY-13816491

PATIENT
  Sex: Female

DRUGS (1)
  1. COUMADIN [Suspect]
     Route: 048
     Dates: start: 20060914, end: 20060914

REACTIONS (1)
  - HAEMORRHAGE [None]
